FAERS Safety Report 9919341 (Version 2)
Quarter: 2014Q1

REPORT INFORMATION
  Report Type: Spontaneous
  Country: US (occurrence: US)
  Receive Date: 20140224
  Receipt Date: 20140326
  Transmission Date: 20141002
  Serious: Yes (Congenital Anomaly, Other)
  Sender: FDA-Public Use
  Company Number: US-PFIZER INC-2014049229

PATIENT
  Sex: Female

DRUGS (4)
  1. ZOLOFT [Suspect]
     Dosage: UNK
     Route: 064
     Dates: start: 20040527
  2. FLAGYL [Concomitant]
     Dosage: UNK
     Route: 064
  3. IRON [Concomitant]
     Dosage: UNK
     Route: 064
  4. ZOFRAN [Concomitant]
     Dosage: UNK
     Route: 064

REACTIONS (7)
  - Maternal exposure during pregnancy [Unknown]
  - Klippel-Trenaunay syndrome [Unknown]
  - Hemihypertrophy [Unknown]
  - Eczema [Unknown]
  - Breast disorder female [Unknown]
  - Vascular anomaly [Unknown]
  - Arthropathy [Unknown]
